FAERS Safety Report 14240578 (Version 1)
Quarter: 2017Q4

REPORT INFORMATION
  Report Type: Report from Study
  Country: BR (occurrence: BR)
  Receive Date: 20171130
  Receipt Date: 20171130
  Transmission Date: 20180321
  Serious: Yes (Hospitalization)
  Sender: FDA-Public Use
  Company Number: BR-ELI_LILLY_AND_COMPANY-BR201711011472

PATIENT
  Age: 53 Year
  Sex: Male

DRUGS (1)
  1. CETUXIMAB. [Suspect]
     Active Substance: CETUXIMAB
     Indication: COLORECTAL CANCER
     Dosage: 450 MG, WEEKLY (1/W)
     Route: 042
     Dates: start: 20170810

REACTIONS (3)
  - Stomatitis [Not Recovered/Not Resolved]
  - Immunodeficiency [Unknown]
  - Ulcer [Unknown]

NARRATIVE: CASE EVENT DATE: 201709
